FAERS Safety Report 5678741-8 (Version None)
Quarter: 2008Q1

REPORT INFORMATION
  Report Type: 
  Country: None (occurrence: None)
  Receive Date: 20080321
  Receipt Date: 20080307
  Transmission Date: 20080703
  Serious: Yes (Hospitalization)
  Sender: FDA-Public Use
  Company Number: 2007BI020513

PATIENT
  Age: 62 Year
  Sex: Female

DRUGS (1)
  1. AVONEX [Suspect]
     Indication: MULTIPLE SCLEROSIS
     Dosage: 30 UG; QW; IM
     Route: 030
     Dates: start: 20041130

REACTIONS (6)
  - ARTHRITIS [None]
  - BLOOD GLUCOSE DECREASED [None]
  - DECUBITUS ULCER [None]
  - DEHYDRATION [None]
  - HYPOTENSION [None]
  - PYREXIA [None]
